FAERS Safety Report 7350229-8 (Version None)
Quarter: 2011Q1

REPORT INFORMATION
  Report Type: 
  Country: None (occurrence: None)
  Receive Date: 20110314
  Receipt Date: 20110310
  Transmission Date: 20110831
  Serious: Yes (Death)
  Sender: FDA-Public Use
  Company Number: ZA-ASTRAZENECA-2010SE55569

PATIENT
  Age: 69 Year
  Sex: Male

DRUGS (2)
  1. ATACAND [Suspect]
     Route: 048
     Dates: start: 20060101
  2. ATACAND [Suspect]
     Route: 048

REACTIONS (2)
  - COUGH [None]
  - DEATH [None]
